FAERS Safety Report 6091241-9 (Version None)
Quarter: 2009Q1

REPORT INFORMATION
  Report Type: 
  Country: None (occurrence: None)
  Receive Date: 20090220
  Receipt Date: 20090220
  Transmission Date: 20090719
  Serious: No
  Sender: FDA-Public Use
  Company Number: None

PATIENT
  Sex: Male
  Weight: 81.6475 kg

DRUGS (2)
  1. EFFEXOR XR [Suspect]
     Indication: DEPRESSION
     Dosage: 1 CAPSULE W #2 DAILY PO
     Route: 048
     Dates: start: 20070306, end: 20090219
  2. EFFEXOR XR [Suspect]
     Indication: DEPRESSION
     Dosage: 1 CAPSULE W/ #1 DAILY PO
     Route: 048
     Dates: start: 20070306, end: 20090219

REACTIONS (20)
  - ABDOMINAL PAIN [None]
  - ANXIETY [None]
  - CHEST PAIN [None]
  - CHROMATURIA [None]
  - CONSTIPATION [None]
  - DEPRESSION [None]
  - DRUG DISPENSING ERROR [None]
  - FATIGUE [None]
  - HAEMATEMESIS [None]
  - HEADACHE [None]
  - INSOMNIA [None]
  - LOSS OF LIBIDO [None]
  - MOOD SWINGS [None]
  - NAUSEA [None]
  - PALPITATIONS [None]
  - PHOTOPHOBIA [None]
  - POLLAKIURIA [None]
  - PRODUCT QUALITY ISSUE [None]
  - TINNITUS [None]
  - VOMITING [None]
